FAERS Safety Report 9420113 (Version 2)
Quarter: 2013Q3

REPORT INFORMATION
  Report Type: Spontaneous
  Country: DK (occurrence: DK)
  Receive Date: 20130725
  Receipt Date: 20130802
  Transmission Date: 20140515
  Serious: Yes (Other)
  Sender: FDA-Public Use
  Company Number: DK-GLAXOSMITHKLINE-B0910538A

PATIENT
  Sex: Female

DRUGS (13)
  1. LAPATINIB [Suspect]
     Indication: DISEASE PROGRESSION
     Route: 065
     Dates: start: 20100719, end: 201201
  2. HERCEPTIN [Suspect]
     Indication: DISEASE PROGRESSION
     Route: 065
     Dates: start: 200701
  3. XELODA [Suspect]
     Indication: DISEASE PROGRESSION
     Route: 065
     Dates: start: 200812
  4. TAXOTERE [Suspect]
     Indication: DISEASE PROGRESSION
     Route: 065
     Dates: start: 200701
  5. ERIBULIN [Suspect]
     Indication: DISEASE PROGRESSION
     Route: 065
     Dates: start: 201201, end: 201301
  6. GEMCITABINE [Suspect]
     Indication: DISEASE PROGRESSION
     Route: 065
  7. CARBOPLATIN [Suspect]
     Indication: DISEASE PROGRESSION
     Route: 065
  8. VINORELBINE [Suspect]
     Indication: BREAST CANCER
     Route: 065
  9. CYCLOPHOSPHAMIDE [Suspect]
     Indication: DISEASE PROGRESSION
     Route: 065
     Dates: start: 2003
  10. METHOTREXATE [Suspect]
     Indication: BREAST CANCER
     Route: 065
     Dates: start: 2003
  11. FLUOROURACIL [Suspect]
     Indication: BREAST CANCER
     Route: 065
     Dates: start: 2003
  12. EPIRUBICIN [Suspect]
     Indication: BREAST CANCER
     Route: 065
  13. CORODIL [Concomitant]

REACTIONS (2)
  - Disease progression [Not Recovered/Not Resolved]
  - Cardiac disorder [Unknown]
